FAERS Safety Report 6154350-1 (Version None)
Quarter: 2009Q2

REPORT INFORMATION
  Report Type: 
  Country: None (occurrence: None)
  Receive Date: 20090414
  Receipt Date: 20090303
  Transmission Date: 20091009
  Serious: No
  Sender: FDA-Public Use
  Company Number: A0771121A

PATIENT
  Sex: Female

DRUGS (6)
  1. REQUIP XL [Suspect]
     Indication: RESTLESS LEGS SYNDROME
     Dosage: 2MG AT NIGHT
     Route: 048
     Dates: start: 20080918, end: 20080920
  2. VYTORIN [Concomitant]
  3. DIOVAN [Concomitant]
  4. CELEXA [Concomitant]
  5. NEXIUM [Concomitant]
  6. VITAMIN D [Concomitant]

REACTIONS (2)
  - INSOMNIA [None]
  - RESTLESS LEGS SYNDROME [None]
